FAERS Safety Report 20647394 (Version 2)
Quarter: 2022Q3

REPORT INFORMATION
  Report Type: Spontaneous
  Country: FR (occurrence: FR)
  Receive Date: 20220329
  Receipt Date: 20220914
  Transmission Date: 20221027
  Serious: Yes (Hospitalization)
  Sender: FDA-Public Use
  Company Number: None

PATIENT
  Age: 49 Year
  Sex: Male

DRUGS (5)
  1. ZOLPIDEM [Suspect]
     Active Substance: ZOLPIDEM TARTRATE
     Indication: Product used for unknown indication
     Dosage: UNK (2 CPS /NUIT)
     Route: 048
  2. COCAINE [Suspect]
     Active Substance: COCAINE
     Indication: Product used for unknown indication
     Dosage: UNK (2 A 5 G LE WEEK-END)
     Route: 042
  3. COCAINE [Suspect]
     Active Substance: COCAINE
     Dosage: UNK (2 A 5 G LE WEEK-END)
  4. KETAMINE [Suspect]
     Active Substance: KETAMINE
     Indication: Product used for unknown indication
     Dosage: UNK (2 A 3 G/SEMAINE)
     Route: 042
  5. ALCOHOL [Suspect]
     Active Substance: ALCOHOL
     Indication: Product used for unknown indication
     Dosage: UNK (2 BIERES DE 50 CL/J+1/2 L DE RHUM/J)
     Route: 048

REACTIONS (1)
  - Drug dependence [Not Recovered/Not Resolved]
